FAERS Safety Report 5220138-9 (Version None)
Quarter: 2007Q1

REPORT INFORMATION
  Report Type: 
  Country: None (occurrence: None)
  Receive Date: 20061121
  Receipt Date: 20060823
  Transmission Date: 20070707
  Serious: No
  Sender: FDA-Public Use
  Company Number: TPA2006A01432

PATIENT
  Age: 73 Year
  Sex: Male
  Weight: 81.6475 kg

DRUGS (7)
  1. ROZEREM [Suspect]
     Indication: INSOMNIA
     Dosage: 8 MG, QHS, PER ORAL
     Route: 048
     Dates: start: 20060822
  2. VERAPAMIL (VERAPAMIL) (240 MILLIGRAM) [Concomitant]
  3. ALTOPREV (ALL OTHER THERAPEUTIC PRODUCTS) (60  MILLIGRAM) [Concomitant]
  4. HYDROCODONE/APAP (PARACETAMOL HYDROCODONE) [Concomitant]
  5. BUSPIRONE (BUSPIRONE) (10 MILLIGRAM) [Concomitant]
  6. REQUIP (ROPINIROLE HYDROCHLORIDE) (0.5 MILLIGRAM) [Concomitant]
  7. FLOMAX (TAMSULOSIN HYDROCHLORIDE) (0.4 MILLIGRAM) [Concomitant]

REACTIONS (1)
  - HEADACHE [None]
